FAERS Safety Report 6538775-8 (Version None)
Quarter: 2010Q1

REPORT INFORMATION
  Report Type: 
  Country: None (occurrence: None)
  Receive Date: 20100114
  Receipt Date: 20100114
  Transmission Date: 20100710
  Serious: Yes (Other)
  Sender: FDA-Public Use
  Company Number: None

PATIENT
  Age: 79 Year
  Sex: Female
  Weight: 77.1115 kg

DRUGS (2)
  1. LEVETIRACETAM 250 MG NOT LISTED [Suspect]
     Indication: PARTIAL SEIZURES
     Dosage: 250 MG TWICE DAILY PO
     Route: 048
     Dates: start: 20091216, end: 20091219
  2. LEVETIRACETA [Concomitant]

REACTIONS (6)
  - FATIGUE [None]
  - LOSS OF CONTROL OF LEGS [None]
  - NAUSEA [None]
  - SYNCOPE [None]
  - TREMOR [None]
  - UNEVALUABLE EVENT [None]
